FAERS Safety Report 5077769-9 (Version None)
Quarter: 2006Q3

REPORT INFORMATION
  Report Type: 
  Country: None (occurrence: None)
  Receive Date: 20060807
  Receipt Date: 20060801
  Transmission Date: 20061208
  Serious: Yes (Other)
  Sender: FDA-Public Use
  Company Number: US200607002932

PATIENT
  Age: 49 Year
  Sex: Female
  Weight: 80.3 kg

DRUGS (3)
  1. CYMBALTA [Suspect]
     Indication: PAIN
     Dosage: 60 MG
     Dates: start: 20060119, end: 20060310
  2. TRAZODONE HCL [Concomitant]
  3. ARTHROTEC [Concomitant]

REACTIONS (3)
  - BILIARY DILATATION [None]
  - CHOLESTASIS [None]
  - HEPATIC TRAUMA [None]
